FAERS Safety Report 8736314 (Version 2)
Quarter: 2012Q4

REPORT INFORMATION
  Report Type: 
  Country: JP (occurrence: JP)
  Receive Date: 20120822
  Receipt Date: 20120924
  Transmission Date: 20130627
  Serious: Yes (Other)
  Sender: FDA-Public Use
  Company Number: JP-PFIZER INC-2012203496

PATIENT
  Age: 7 Year
  Sex: Male

DRUGS (4)
  1. CISPLATIN [Suspect]
     Indication: THYMOMA MALIGNANT
     Dosage: UNK
     Dates: start: 201108
  2. DOXORUBICIN HCL [Suspect]
     Indication: THYMOMA MALIGNANT
     Dosage: UNK
     Dates: start: 201108
  3. VINCRISTINE [Suspect]
     Indication: THYMOMA MALIGNANT
     Dosage: UNK
     Dates: start: 201108
  4. CYCLOPHOSPHAMIDE [Suspect]
     Indication: THYMOMA MALIGNANT
     Dosage: UNK
     Dates: start: 201108

REACTIONS (2)
  - Febrile neutropenia [Recovered/Resolved]
  - Pneumonia bacterial [Recovered/Resolved]
